FAERS Safety Report 5607907-8 (Version None)
Quarter: 2008Q1

REPORT INFORMATION
  Report Type: 
  Country: None (occurrence: None)
  Receive Date: 20080130
  Receipt Date: 20080122
  Transmission Date: 20080703
  Serious: Yes (Hospitalization)
  Sender: FDA-Public Use
  Company Number: GB-TEVA-166702ISR

PATIENT
  Age: 74 Year
  Sex: Female
  Weight: 75 kg

DRUGS (2)
  1. ATENOLOL [Suspect]
     Indication: HYPERTENSION
     Route: 048
     Dates: start: 20050527, end: 20071124
  2. TERBINAFINE HCL [Suspect]
     Indication: FUNGAL INFECTION
     Route: 048
     Dates: start: 20071114, end: 20071124

REACTIONS (1)
  - CEREBROVASCULAR ACCIDENT [None]
